FAERS Safety Report 18065627 (Version 3)
Quarter: 2020Q3

REPORT INFORMATION
  Report Type: Report from Study
  Country: KR (occurrence: KR)
  Receive Date: 20200724
  Receipt Date: 20200819
  Transmission Date: 20201103
  Serious: Yes (Hospitalization)
  Sender: FDA-Public Use
  Company Number: NVSC2020KR157723

PATIENT
  Age: 52 Year
  Sex: Male
  Weight: 57 kg

DRUGS (38)
  1. BASPO [Concomitant]
     Indication: PREMEDICATION
     Dosage: 50 G, PRN
     Route: 047
     Dates: start: 20200622, end: 20200622
  2. ALPELISIB [Suspect]
     Active Substance: ALPELISIB
     Indication: SQUAMOUS CELL CARCINOMA OF HEAD AND NECK
     Dosage: 350 MG, UNK
     Route: 048
     Dates: start: 20200515, end: 20200531
  3. XANAX [Concomitant]
     Active Substance: ALPRAZOLAM
     Indication: INSOMNIA
     Dosage: 0.25 MG, QD
     Route: 048
     Dates: start: 20200515, end: 20200531
  4. XANAX [Concomitant]
     Active Substance: ALPRAZOLAM
     Dosage: 0.25 MG, QD
     Route: 048
     Dates: start: 20200629
  5. TAMIPOOL [Concomitant]
     Active Substance: VITAMINS
     Indication: SUPPLEMENTATION THERAPY
     Dosage: 1 VIAL, QD
     Route: 042
     Dates: start: 20200601, end: 20200622
  6. MACPERAN [Concomitant]
     Active Substance: METOCLOPRAMIDE HYDROCHLORIDE
     Indication: NAUSEA
     Dosage: 10 MG, QD
     Route: 042
     Dates: start: 20200611, end: 20200612
  7. ENCOVER [Concomitant]
     Indication: DECREASED APPETITE
     Dosage: 200 ML, PRN
     Route: 048
     Dates: start: 20200613
  8. ALBUMIN [Concomitant]
     Active Substance: ALBUMIN HUMAN
     Indication: HYPOALBUMINAEMIA
     Dosage: 100 ML
     Route: 042
     Dates: start: 20200614, end: 20200617
  9. WINUF PERI [Concomitant]
     Active Substance: AMINO ACIDS\DEXTROSE\ELECTROLYTES NOS\SOYBEAN OIL\VITAMINS
     Indication: DECREASED APPETITE
     Dosage: 1085 ML, QD
     Route: 042
     Dates: start: 20200601, end: 20200622
  10. TYLENOL [Concomitant]
     Active Substance: ACETAMINOPHEN
     Indication: PYREXIA
     Dosage: 1300 MG
     Route: 048
     Dates: start: 20200611, end: 20200611
  11. TANTUM [Concomitant]
     Active Substance: BENZYDAMINE HYDROCHLORIDE
     Indication: STOMATITIS
     Dosage: 1 BOT, PRN
     Route: 048
     Dates: start: 20200616, end: 20200625
  12. HEPA MERZ [Concomitant]
     Indication: ASPARTATE AMINOTRANSFERASE INCREASED
  13. LIDOCAINE. [Concomitant]
     Active Substance: LIDOCAINE
     Dosage: 20 ML, ONCE /SINGLE
     Route: 042
     Dates: start: 20200615, end: 20200615
  14. LEGALON [Concomitant]
     Active Substance: DIETARY SUPPLEMENT\HERBALS\MILK THISTLE
     Indication: ALANINE AMINOTRANSFERASE INCREASED
     Dosage: 140, 1 CAP, BID
     Route: 048
     Dates: start: 20200608, end: 20200611
  15. LEGALON [Concomitant]
     Active Substance: DIETARY SUPPLEMENT\HERBALS\MILK THISTLE
     Indication: ASPARTATE AMINOTRANSFERASE INCREASED
     Dosage: 140, 1 CAP, BID
     Route: 048
     Dates: start: 20200618, end: 20200618
  16. LIDOCAINE. [Concomitant]
     Active Substance: LIDOCAINE
     Dosage: 20 ML, ONCE /SINGLE
     Route: 042
     Dates: start: 20200616, end: 20200616
  17. ALPELISIB [Suspect]
     Active Substance: ALPELISIB
     Dosage: 350 MG, UNK
     Route: 048
     Dates: start: 20200625, end: 20200709
  18. MUCOSTA [Concomitant]
     Active Substance: REBAMIPIDE
     Indication: PROPHYLAXIS
     Dosage: 100 MG, TID
     Route: 048
     Dates: start: 20200527, end: 20200611
  19. PENIRAMIN [Concomitant]
     Dosage: 4 MG, TID
     Route: 042
     Dates: start: 20200613, end: 20200623
  20. PENNEL [Concomitant]
     Dosage: 1 CAP, BID
     Route: 048
     Dates: start: 20200713
  21. MEGESTROL [Concomitant]
     Active Substance: MEGESTROL
     Indication: DECREASED APPETITE
     Dosage: 10 ML, QD
     Route: 048
     Dates: start: 20200623
  22. LEGALON [Concomitant]
     Active Substance: DIETARY SUPPLEMENT\HERBALS\MILK THISTLE
     Dosage: 140, 1 CAP, BID
     Route: 048
     Dates: start: 20200713
  23. HEPA MERZ [Concomitant]
     Indication: ALANINE AMINOTRANSFERASE INCREASED
     Dosage: 400 MG, BID
     Route: 042
     Dates: start: 20200618
  24. ATROPINE. [Concomitant]
     Active Substance: ATROPINE
     Indication: PREMEDICATION
     Dosage: 0.5 MG, ONCE/SINGLE
     Route: 030
     Dates: start: 20200608, end: 20200608
  25. HUMULIN NOS [Concomitant]
     Active Substance: INSULIN HUMAN
     Indication: HYPERGLYCAEMIA
     Dosage: 10 UNIT, QD
     Route: 058
     Dates: start: 20200602, end: 20200603
  26. HUMULIN NOS [Concomitant]
     Active Substance: INSULIN HUMAN
     Dosage: 20 UNIT, QD
     Route: 058
     Dates: start: 20200605, end: 20200622
  27. PENIRAMIN [Concomitant]
     Indication: PREMEDICATION
     Dosage: 4 MG, QD
     Route: 042
     Dates: start: 20200603, end: 20200612
  28. PENNEL [Concomitant]
     Indication: PROPHYLAXIS
     Dosage: 1 CAP,BID
     Route: 048
     Dates: start: 20200618, end: 20200618
  29. LEGALON [Concomitant]
     Active Substance: DIETARY SUPPLEMENT\HERBALS\MILK THISTLE
     Indication: PROPHYLAXIS
     Dosage: 140, 1 CAP, BID
     Route: 048
     Dates: start: 20200621
  30. TROPHERINE [Concomitant]
     Indication: PREMEDICATION
     Dosage: 0.8 ML, ONCE/SINGLE
     Route: 047
     Dates: start: 20200622, end: 20200622
  31. TOPISOL MILK LOTION [Concomitant]
     Indication: RASH
     Dosage: 50 G, PRN
     Route: 061
     Dates: start: 20200622
  32. LIDOCAINE. [Concomitant]
     Active Substance: LIDOCAINE
     Indication: PREMEDICATION
     Dosage: 20 ML, ONCE /SINGLE
     Route: 042
     Dates: start: 20200608, end: 20200608
  33. TRAMADOL. [Concomitant]
     Active Substance: TRAMADOL
     Indication: HEADACHE
     Dosage: 50 MG, ONCE/SINGLE
     Route: 042
     Dates: start: 20200622, end: 20200623
  34. HUMULIN NOS [Concomitant]
     Active Substance: INSULIN HUMAN
     Dosage: 15 UNIT, QD
     Route: 058
     Dates: start: 20200604, end: 20200604
  35. PENNEL [Concomitant]
     Indication: ALANINE AMINOTRANSFERASE INCREASED
     Dosage: 1 CAP, TID
     Route: 048
     Dates: start: 20200608, end: 20200611
  36. LASIX [Concomitant]
     Active Substance: FUROSEMIDE
     Indication: DYSPNOEA
     Dosage: 20 MG, PRN
     Route: 042
     Dates: start: 20200616, end: 20200623
  37. POTASSIUM CHLORIDE. [Concomitant]
     Active Substance: POTASSIUM CHLORIDE
     Indication: HYPOKALAEMIA
     Dosage: 100 ML, PRN
     Route: 042
     Dates: start: 20200611, end: 20200618
  38. PHOSTEN [Concomitant]
     Indication: HYPOPHOSPHATAEMIA
     Dosage: 20 ML, BID
     Route: 042
     Dates: start: 20200614, end: 20200614

REACTIONS (2)
  - Pneumonia [Recovered/Resolved with Sequelae]
  - Pneumonia [Recovered/Resolved]

NARRATIVE: CASE EVENT DATE: 20200526
